FAERS Safety Report 4952399-5 (Version None)
Quarter: 2006Q1

REPORT INFORMATION
  Report Type: 
  Country: None (occurrence: None)
  Receive Date: 20060317
  Receipt Date: 20060309
  Transmission Date: 20060701
  Serious: Yes (Death, Life-Threatening, Hospitalization)
  Sender: FDA-Public Use
  Company Number: 430001N06JPN

PATIENT
  Age: 64 Year
  Sex: Male

DRUGS (14)
  1. NOVANTRONE [Suspect]
     Indication: ACUTE MYELOID LEUKAEMIA
     Dosage: 8 MG, 1 IN 1 DAYS, INTRAVENOUS
     Route: 042
     Dates: start: 20060104, end: 20060104
  2. GEMTUZUMAB OZOGAMICIN [Suspect]
     Indication: ACUTE MYELOID LEUKAEMIA
     Dosage: MG/M2, 1 IN 1 DAYS, INTRAVENOUS
     Route: 042
     Dates: start: 20060109, end: 20060109
  3. METHYLPREDNISOLONE SODIUM SUCCINATE [Concomitant]
  4. FAMOTIDINE [Concomitant]
  5. IRSOGLADINE MALEATE [Concomitant]
  6. POLYMYXIN B SULFATE [Concomitant]
  7. ETOPOSIDE [Suspect]
     Indication: ACUTE MYELOID LEUKAEMIA
     Dosage: 80 MG, 1 IN 1 DAYS, INTRAVENOUS
     Route: 042
     Dates: start: 20060104, end: 20060105
  8. MAGNESIUM OXIDE [Concomitant]
  9. ITRACONAZOLE [Concomitant]
  10. URSODEOXYCHOLIC ACID [Concomitant]
  11. TAMSULOSIN HYDROCHLORIDE [Concomitant]
  12. LOXOPROFEN SODIUM [Concomitant]
  13. BACTRIM [Concomitant]
  14. CIPROFLOXACIN HYDROCHLORIDE [Concomitant]

REACTIONS (7)
  - BLOOD BILIRUBIN INCREASED [None]
  - DRUG INEFFECTIVE [None]
  - EPISTAXIS [None]
  - FEBRILE NEUTROPENIA [None]
  - RESPIRATORY FAILURE [None]
  - RESTLESSNESS [None]
  - VENOOCCLUSIVE LIVER DISEASE [None]
